FAERS Safety Report 6583777-9 (Version None)
Quarter: 2010Q1

REPORT INFORMATION
  Report Type: 
  Country: None (occurrence: None)
  Receive Date: 20100213
  Receipt Date: 20100213
  Transmission Date: 20100710
  Serious: Yes (Other)
  Sender: FDA-Public Use
  Company Number: None

PATIENT
  Age: 60 Year
  Sex: Female
  Weight: 67.1324 kg

DRUGS (2)
  1. ASTEPRO [Suspect]
     Indication: NASAL CONGESTION
     Dosage: 205.5 MCG ONCE A DAY NASAL
     Route: 045
     Dates: start: 20091224, end: 20091224
  2. ASTEPRO [Suspect]
     Indication: UPPER RESPIRATORY TRACT INFECTION
     Dosage: 205.5 MCG ONCE A DAY NASAL
     Route: 045
     Dates: start: 20091224, end: 20091224

REACTIONS (3)
  - NASAL DISCOMFORT [None]
  - PALPITATIONS [None]
  - PARAESTHESIA [None]
